FAERS Safety Report 8272711-1 (Version None)
Quarter: 2012Q2

REPORT INFORMATION
  Report Type: 
  Country: None (occurrence: None)
  Receive Date: 20120411
  Receipt Date: 20120319
  Transmission Date: 20120825
  Serious: Yes (Other)
  Sender: FDA-Public Use
  Company Number: SE-BAXTER-2012BH001424

PATIENT
  Sex: Male

DRUGS (1)
  1. SEVOFLURANE [Suspect]
     Indication: SEDATION

REACTIONS (1)
  - PULMONARY OEDEMA [None]
